FAERS Safety Report 17422235 (Version 4)
Quarter: 2020Q2

REPORT INFORMATION
  Report Type: Report from Study
  Country: US (occurrence: US)
  Receive Date: 20200214
  Receipt Date: 20200528
  Transmission Date: 20200713
  Serious: Yes (Other)
  Sender: FDA-Public Use
  Company Number: NVSC2020US036915

PATIENT
  Sex: Male

DRUGS (2)
  1. COSENTYX [Suspect]
     Active Substance: SECUKINUMAB
     Indication: PSORIASIS
  2. COSENTYX [Suspect]
     Active Substance: SECUKINUMAB
     Indication: PSORIATIC ARTHROPATHY
     Dosage: UNK
     Route: 065
     Dates: start: 20191001

REACTIONS (5)
  - Seasonal allergy [Recovered/Resolved]
  - Nasopharyngitis [Unknown]
  - Ocular discomfort [Recovered/Resolved]
  - Vitreous detachment [Unknown]
  - Swelling of eyelid [Recovered/Resolved]
